FAERS Safety Report 18560917 (Version 31)
Quarter: 2025Q1

REPORT INFORMATION
  Report Type: Spontaneous
  Country: GB (occurrence: GB)
  Receive Date: 20201130
  Receipt Date: 20250212
  Transmission Date: 20250409
  Serious: Yes (Other)
  Sender: MYLAN
  Company Number: GB-PFIZER INC-2020422611

PATIENT
  Age: 36 Year
  Sex: Male

DRUGS (110)
  1. GLIMEPIRIDE [Suspect]
     Active Substance: GLIMEPIRIDE
     Indication: Product used for unknown indication
     Route: 048
  2. GLIMEPIRIDE [Suspect]
     Active Substance: GLIMEPIRIDE
     Indication: Product used for unknown indication
     Route: 048
  3. GLIMEPIRIDE [Suspect]
     Active Substance: GLIMEPIRIDE
     Route: 048
  4. GLIMEPIRIDE [Suspect]
     Active Substance: GLIMEPIRIDE
     Route: 048
  5. GLIMEPIRIDE [Suspect]
     Active Substance: GLIMEPIRIDE
     Route: 048
  6. GLIMEPIRIDE [Suspect]
     Active Substance: GLIMEPIRIDE
     Route: 065
  7. GLIMEPIRIDE [Suspect]
     Active Substance: GLIMEPIRIDE
     Route: 048
  8. GLIMEPIRIDE [Suspect]
     Active Substance: GLIMEPIRIDE
  9. GLIMEPIRIDE [Suspect]
     Active Substance: GLIMEPIRIDE
     Route: 048
  10. GLIMEPIRIDE [Suspect]
     Active Substance: GLIMEPIRIDE
     Route: 048
  11. TAMSULOSIN [Suspect]
     Active Substance: TAMSULOSIN
     Indication: Product used for unknown indication
     Route: 048
  12. TAMSULOSIN [Suspect]
     Active Substance: TAMSULOSIN
     Route: 048
  13. PIOGLITAZONE [Suspect]
     Active Substance: PIOGLITAZONE
     Indication: Product used for unknown indication
     Route: 048
  14. PIOGLITAZONE [Suspect]
     Active Substance: PIOGLITAZONE
     Route: 065
  15. PIOGLITAZONE [Suspect]
     Active Substance: PIOGLITAZONE
     Route: 065
  16. QUETIAPINE [Suspect]
     Active Substance: QUETIAPINE
     Indication: Product used for unknown indication
     Route: 065
  17. QUETIAPINE [Suspect]
     Active Substance: QUETIAPINE
     Indication: Product used for unknown indication
     Route: 048
  18. QUETIAPINE [Suspect]
     Active Substance: QUETIAPINE
     Route: 048
  19. QUETIAPINE [Suspect]
     Active Substance: QUETIAPINE
     Route: 048
  20. QUETIAPINE [Suspect]
     Active Substance: QUETIAPINE
     Route: 048
  21. QUETIAPINE [Suspect]
     Active Substance: QUETIAPINE
     Route: 048
  22. QUETIAPINE [Suspect]
     Active Substance: QUETIAPINE
     Route: 048
  23. QUETIAPINE [Suspect]
     Active Substance: QUETIAPINE
     Route: 048
  24. RAMIPRIL [Suspect]
     Active Substance: RAMIPRIL
     Indication: Product used for unknown indication
     Route: 048
  25. RAMIPRIL [Suspect]
     Active Substance: RAMIPRIL
     Route: 048
  26. RAMIPRIL [Suspect]
     Active Substance: RAMIPRIL
     Route: 048
  27. CLOZAPINE [Suspect]
     Active Substance: CLOZAPINE
     Indication: Schizophrenia
     Route: 048
     Dates: end: 20220417
  28. CLOZAPINE [Suspect]
     Active Substance: CLOZAPINE
     Route: 048
  29. CLOZAPINE [Suspect]
     Active Substance: CLOZAPINE
     Route: 065
  30. CLOZAPINE [Suspect]
     Active Substance: CLOZAPINE
     Route: 048
  31. CLOZAPINE [Suspect]
     Active Substance: CLOZAPINE
     Route: 048
     Dates: start: 20181121, end: 20220317
  32. AMLODIPINE BESYLATE [Suspect]
     Active Substance: AMLODIPINE BESYLATE
     Indication: Product used for unknown indication
     Route: 048
  33. AMLODIPINE BESYLATE [Suspect]
     Active Substance: AMLODIPINE BESYLATE
     Route: 048
  34. AMLODIPINE BESYLATE [Suspect]
     Active Substance: AMLODIPINE BESYLATE
     Route: 048
  35. AMLODIPINE BESYLATE [Suspect]
     Active Substance: AMLODIPINE BESYLATE
     Route: 048
  36. AMLODIPINE BESYLATE [Suspect]
     Active Substance: AMLODIPINE BESYLATE
     Route: 048
  37. AMLODIPINE BESYLATE [Suspect]
     Active Substance: AMLODIPINE BESYLATE
     Route: 048
  38. AMLODIPINE BESYLATE [Suspect]
     Active Substance: AMLODIPINE BESYLATE
     Route: 048
  39. INDAPAMIDE [Suspect]
     Active Substance: INDAPAMIDE
     Indication: Product used for unknown indication
     Route: 048
  40. INDAPAMIDE [Suspect]
     Active Substance: INDAPAMIDE
     Indication: Product used for unknown indication
     Route: 048
  41. INDAPAMIDE [Suspect]
     Active Substance: INDAPAMIDE
     Route: 065
  42. INDAPAMIDE [Suspect]
     Active Substance: INDAPAMIDE
  43. INDAPAMIDE [Suspect]
     Active Substance: INDAPAMIDE
     Route: 048
  44. ATORVASTATIN CALCIUM [Suspect]
     Active Substance: ATORVASTATIN CALCIUM
     Indication: Product used for unknown indication
     Route: 048
  45. ATORVASTATIN CALCIUM [Suspect]
     Active Substance: ATORVASTATIN CALCIUM
     Route: 048
  46. ATORVASTATIN CALCIUM [Suspect]
     Active Substance: ATORVASTATIN CALCIUM
     Route: 048
  47. AMLODIPINE BESYLATE [Suspect]
     Active Substance: AMLODIPINE BESYLATE
     Indication: Product used for unknown indication
     Route: 065
  48. AMLODIPINE BESYLATE [Suspect]
     Active Substance: AMLODIPINE BESYLATE
     Route: 048
  49. ATORVASTATIN CALCIUM [Suspect]
     Active Substance: ATORVASTATIN CALCIUM
     Indication: Product used for unknown indication
     Route: 048
  50. ATORVASTATIN CALCIUM [Suspect]
     Active Substance: ATORVASTATIN CALCIUM
     Route: 048
  51. ATORVASTATIN CALCIUM [Suspect]
     Active Substance: ATORVASTATIN CALCIUM
  52. ATORVASTATIN CALCIUM [Suspect]
     Active Substance: ATORVASTATIN CALCIUM
     Route: 048
  53. ATORVASTATIN CALCIUM [Suspect]
     Active Substance: ATORVASTATIN CALCIUM
     Route: 048
  54. METFORMIN [Suspect]
     Active Substance: METFORMIN HYDROCHLORIDE
     Indication: Product used for unknown indication
     Route: 048
  55. METFORMIN [Suspect]
     Active Substance: METFORMIN HYDROCHLORIDE
     Route: 048
  56. METFORMIN [Suspect]
     Active Substance: METFORMIN HYDROCHLORIDE
     Route: 048
  57. METFORMIN [Suspect]
     Active Substance: METFORMIN HYDROCHLORIDE
     Route: 048
  58. QUETIAPINE [Suspect]
     Active Substance: QUETIAPINE
     Indication: Product used for unknown indication
     Route: 065
  59. QUETIAPINE [Suspect]
     Active Substance: QUETIAPINE
     Route: 048
  60. QUETIAPINE [Suspect]
     Active Substance: QUETIAPINE
     Indication: Product used for unknown indication
     Route: 048
  61. QUETIAPINE [Suspect]
     Active Substance: QUETIAPINE
     Indication: Product used for unknown indication
     Route: 065
  62. QUETIAPINE [Suspect]
     Active Substance: QUETIAPINE
     Route: 065
  63. QUETIAPINE [Suspect]
     Active Substance: QUETIAPINE
     Route: 048
  64. QUETIAPINE [Suspect]
     Active Substance: QUETIAPINE
     Route: 048
  65. QUETIAPINE [Suspect]
     Active Substance: QUETIAPINE
     Route: 048
  66. FINASTERIDE [Suspect]
     Active Substance: FINASTERIDE
     Indication: Product used for unknown indication
     Route: 065
  67. FINASTERIDE [Suspect]
     Active Substance: FINASTERIDE
     Route: 065
  68. METFORMIN [Suspect]
     Active Substance: METFORMIN HYDROCHLORIDE
     Indication: Product used for unknown indication
     Route: 048
  69. METFORMIN [Suspect]
     Active Substance: METFORMIN HYDROCHLORIDE
     Route: 048
  70. METFORMIN [Suspect]
     Active Substance: METFORMIN HYDROCHLORIDE
     Route: 048
  71. QUETIAPINE [Suspect]
     Active Substance: QUETIAPINE
     Indication: Product used for unknown indication
     Route: 048
  72. QUETIAPINE [Suspect]
     Active Substance: QUETIAPINE
     Route: 048
  73. QUETIAPINE [Suspect]
     Active Substance: QUETIAPINE
     Route: 048
  74. QUETIAPINE [Suspect]
     Active Substance: QUETIAPINE
     Route: 048
  75. QUETIAPINE [Suspect]
     Active Substance: QUETIAPINE
     Route: 048
  76. QUETIAPINE [Suspect]
     Active Substance: QUETIAPINE
     Route: 048
  77. FINASTERIDE\TAMSULOSIN [Suspect]
     Active Substance: FINASTERIDE\TAMSULOSIN
     Indication: Product used for unknown indication
     Route: 065
  78. FINASTERIDE\TAMSULOSIN [Suspect]
     Active Substance: FINASTERIDE\TAMSULOSIN
     Route: 048
  79. FINASTERIDE\TAMSULOSIN [Suspect]
     Active Substance: FINASTERIDE\TAMSULOSIN
     Route: 048
  80. AMISULPRIDE [Suspect]
     Active Substance: AMISULPRIDE
     Indication: Product used for unknown indication
     Route: 048
  81. AMISULPRIDE [Suspect]
     Active Substance: AMISULPRIDE
     Route: 065
  82. AMISULPRIDE [Suspect]
     Active Substance: AMISULPRIDE
     Route: 048
  83. AMISULPRIDE [Suspect]
     Active Substance: AMISULPRIDE
     Route: 048
  84. QUETIAPINE [Suspect]
     Active Substance: QUETIAPINE
     Indication: Product used for unknown indication
     Route: 048
  85. TAMSULOSIN [Concomitant]
     Active Substance: TAMSULOSIN
     Indication: Product used for unknown indication
     Route: 065
  86. TAMSULOSIN [Concomitant]
     Active Substance: TAMSULOSIN
  87. ATORVASTATIN [Concomitant]
     Active Substance: ATORVASTATIN
     Indication: Product used for unknown indication
     Route: 048
  88. ATORVASTATIN [Concomitant]
     Active Substance: ATORVASTATIN
     Route: 048
  89. TAMSULOSIN [Suspect]
     Active Substance: TAMSULOSIN
     Indication: Product used for unknown indication
  90. ATORVASTATIN [Suspect]
     Active Substance: ATORVASTATIN
     Indication: Product used for unknown indication
     Route: 048
  91. ATORVASTATIN [Suspect]
     Active Substance: ATORVASTATIN
     Indication: Product used for unknown indication
  92. RAMIPRIL [Suspect]
     Active Substance: RAMIPRIL
     Indication: Product used for unknown indication
     Route: 048
  93. RAMIPRIL [Suspect]
     Active Substance: RAMIPRIL
     Route: 048
  94. AMLODIPINE [Suspect]
     Active Substance: AMLODIPINE BESYLATE
     Indication: Product used for unknown indication
     Route: 048
  95. AMLODIPINE [Suspect]
     Active Substance: AMLODIPINE BESYLATE
     Route: 048
  96. AMLODIPINE [Suspect]
     Active Substance: AMLODIPINE BESYLATE
     Route: 048
  97. METFORMIN [Suspect]
     Active Substance: METFORMIN HYDROCHLORIDE
     Indication: Product used for unknown indication
     Route: 048
  98. METFORMIN [Suspect]
     Active Substance: METFORMIN HYDROCHLORIDE
     Route: 048
  99. METFORMIN [Suspect]
     Active Substance: METFORMIN HYDROCHLORIDE
     Route: 048
  100. PIOGLITAZONE [Suspect]
     Active Substance: PIOGLITAZONE
     Indication: Product used for unknown indication
  101. PIOGLITAZONE [Suspect]
     Active Substance: PIOGLITAZONE
     Route: 048
  102. AMLODIPINE [Suspect]
     Active Substance: AMLODIPINE BESYLATE
     Indication: Product used for unknown indication
  103. AMLODIPINE [Suspect]
     Active Substance: AMLODIPINE BESYLATE
     Route: 048
  104. METFORMIN [Suspect]
     Active Substance: METFORMIN HYDROCHLORIDE
     Indication: Product used for unknown indication
     Route: 048
  105. METFORMIN [Suspect]
     Active Substance: METFORMIN HYDROCHLORIDE
     Route: 048
  106. METFORMIN [Suspect]
     Active Substance: METFORMIN HYDROCHLORIDE
     Route: 048
  107. METFORMIN [Suspect]
     Active Substance: METFORMIN HYDROCHLORIDE
     Route: 048
  108. METFORMIN [Suspect]
     Active Substance: METFORMIN HYDROCHLORIDE
     Route: 048
  109. METFORMIN [Suspect]
     Active Substance: METFORMIN HYDROCHLORIDE
     Route: 048
  110. METFORMIN [Suspect]
     Active Substance: METFORMIN HYDROCHLORIDE
     Route: 048

REACTIONS (7)
  - Hallucination, visual [Unknown]
  - Type 2 diabetes mellitus [Unknown]
  - Hyperthyroidism [Unknown]
  - White blood cell count increased [Recovered/Resolved]
  - Influenza [Unknown]
  - Neutropenia [Recovered/Resolved]
  - White blood cell count decreased [Recovered/Resolved]

NARRATIVE: CASE EVENT DATE: 20150101
